FAERS Safety Report 6756614-7 (Version None)
Quarter: 2010Q2

REPORT INFORMATION
  Report Type: 
  Country: None (occurrence: None)
  Receive Date: 20100603
  Receipt Date: 20100603
  Transmission Date: 20101027
  Serious: Yes (Other)
  Sender: FDA-Public Use
  Company Number: None

PATIENT
  Age: 65 Year
  Sex: Male
  Weight: 102.0593 kg

DRUGS (1)
  1. GAMMAGARD LIQUID [Suspect]
     Dosage: 45G IV DAILY FOR 3 DAYS EVERY 3-5 WEEKS
     Route: 042

REACTIONS (1)
  - URTICARIA [None]
